FAERS Safety Report 8239540-6 (Version None)
Quarter: 2012Q1

REPORT INFORMATION
  Report Type: 
  Country: None (occurrence: None)
  Receive Date: 20120328
  Receipt Date: 20120316
  Transmission Date: 20120608
  Serious: Yes (Other)
  Sender: FDA-Public Use
  Company Number: US-RB-036554-12

PATIENT
  Age: 30 Year
  Sex: Female

DRUGS (1)
  1. MUCINEX DM [Suspect]
     Indication: PRODUCT USED FOR UNKNOWN INDICATION
     Route: 048
     Dates: start: 20120313

REACTIONS (7)
  - NAUSEA [None]
  - HALLUCINATION [None]
  - DIZZINESS [None]
  - PRESYNCOPE [None]
  - TREMOR [None]
  - VOMITING [None]
  - NERVOUSNESS [None]
